FAERS Safety Report 22399606 (Version 1)
Quarter: 2023Q2

REPORT INFORMATION
  Report Type: Spontaneous
  Country: ES (occurrence: None)
  Receive Date: 20230602
  Receipt Date: 20230602
  Transmission Date: 20230721
  Serious: Yes (Other)
  Sender: FDA-Public Use
  Company Number: ES-Merck Healthcare KGaA-9403335

PATIENT
  Age: 52 Year
  Sex: Female

DRUGS (11)
  1. MAVENCLAD [Suspect]
     Active Substance: CLADRIBINE
     Indication: Multiple sclerosis
     Dosage: YEAR ONE MONTH ONE THERAPY, 2 TABLETS ON DAYS 1, 2 AND 1 TABLET ON DAY 3
     Route: 048
     Dates: start: 20230110, end: 20230112
  2. MAVENCLAD [Suspect]
     Active Substance: CLADRIBINE
     Dosage: YEAR ONE MONTH TWO THERAPY, 2 TABLETS ON DAYS 1, 2 AND 1 TABLET ON DAY 3
     Route: 048
     Dates: start: 20230207, end: 20230209
  3. LORAZEPAM [Concomitant]
     Active Substance: LORAZEPAM
     Indication: Product used for unknown indication
     Dosage: PRESCRIBED IN JAN 2023
  4. DEXKETOPROFEN TROMETAMOL [Concomitant]
     Active Substance: DEXKETOPROFEN TROMETAMOL
     Indication: Product used for unknown indication
     Dosage: PRESCRIBED IN JAN 2023
  5. ACETAMINOPHEN [Concomitant]
     Active Substance: ACETAMINOPHEN
     Indication: Product used for unknown indication
     Dosage: PRESCRIBED IN JAN 2023
  6. OXITRIL [Concomitant]
     Indication: Product used for unknown indication
     Dosage: PRESCRIBED IN JAN 2023
  7. DIAZEPAM [Concomitant]
     Active Substance: DIAZEPAM
     Indication: Product used for unknown indication
     Dosage: PRESCRIBED IN JAN 2023
  8. TRAMADOL [Concomitant]
     Active Substance: TRAMADOL
     Indication: Product used for unknown indication
     Dosage: PRESCRIBED IN JAN 2023
  9. PANTOPRAZOLE [Concomitant]
     Active Substance: PANTOPRAZOLE
     Indication: Product used for unknown indication
     Dosage: PRESCRIBED IN JAN 2023
  10. SYMBICORT [Concomitant]
     Active Substance: BUDESONIDE\FORMOTEROL FUMARATE DIHYDRATE
     Indication: Product used for unknown indication
     Dosage: PRESCRIBED IN JAN 2023
  11. TRAMADOL HYDROCHLORIDE [Concomitant]
     Active Substance: TRAMADOL HYDROCHLORIDE
     Indication: Product used for unknown indication
     Dosage: PRESCRIBED IN JAN 2023

REACTIONS (3)
  - Toxic skin eruption [Unknown]
  - Pruritus [Unknown]
  - Rash papular [Unknown]
